FAERS Safety Report 20305248 (Version 1)
Quarter: 2022Q1

REPORT INFORMATION
  Report Type: Spontaneous
  Country: US (occurrence: None)
  Receive Date: 20220106
  Receipt Date: 20220106
  Transmission Date: 20220423
  Serious: Yes (Hospitalization)
  Sender: FDA-Public Use
  Company Number: None

PATIENT
  Age: 34 Year
  Sex: Female
  Weight: 58 kg

DRUGS (1)
  1. PRIVIGEN [Suspect]
     Active Substance: HUMAN IMMUNOGLOBULIN G
     Indication: Polymyositis
     Dosage: OTHER FREQUENCY : MONTHLY (OVER 2 DY;?
     Route: 042

REACTIONS (7)
  - Rash [None]
  - Eye swelling [None]
  - Nausea [None]
  - Abdominal pain [None]
  - Infusion related reaction [None]
  - Angioedema [None]
  - Lip swelling [None]

NARRATIVE: CASE EVENT DATE: 20211228
